FAERS Safety Report 9197630 (Version 2)
Quarter: 2013Q3

REPORT INFORMATION
  Report Type: Spontaneous
  Country: US (occurrence: US)
  Receive Date: 20130328
  Receipt Date: 20130802
  Transmission Date: 20140515
  Serious: Yes (Hospitalization, Other)
  Sender: FDA-Public Use
  Company Number: US-BAYER-2013-036815

PATIENT
  Age: 46 Year
  Sex: Female

DRUGS (9)
  1. YASMIN [Suspect]
  2. KEFLEX [Concomitant]
     Indication: NAIL INFECTION
     Dosage: UNK
     Dates: start: 20050807
  3. PRILOSEC [Concomitant]
     Dosage: UNK
     Dates: start: 20050807
  4. CALTRATE [CALCIUM CARBONATE] [Concomitant]
     Dosage: UNK
     Dates: start: 20050807
  5. VALIUM [Concomitant]
     Dosage: OCCASIONALLY
  6. PAXIL [Concomitant]
  7. TOPROL [Concomitant]
  8. DARVON [Concomitant]
  9. OXYCODONE [Concomitant]

REACTIONS (2)
  - Pulmonary embolism [None]
  - Deep vein thrombosis [None]
